FAERS Safety Report 10066939 (Version 2)
Quarter: 2014Q2

REPORT INFORMATION
  Report Type: Spontaneous
  Country: IT (occurrence: IT)
  Receive Date: 20140409
  Receipt Date: 20140602
  Transmission Date: 20141212
  Serious: Yes (Other)
  Sender: FDA-Public Use
  Company Number: IT-ROCHE-1377625

PATIENT
  Age: 67 Year
  Sex: Male
  Weight: 79 kg

DRUGS (5)
  1. MABTHERA [Suspect]
     Indication: NON-HODGKIN^S LYMPHOMA
     Route: 041
     Dates: start: 20131028, end: 20140218
  2. ENDOXAN BAXTER [Suspect]
     Indication: PRODUCT USED FOR UNKNOWN INDICATION
     Route: 042
     Dates: start: 20131028, end: 20140218
  3. VINCRISTINA [Suspect]
     Indication: NON-HODGKIN^S LYMPHOMA
     Route: 040
     Dates: start: 20131028, end: 20140218
  4. ADRIBLASTINE [Suspect]
     Indication: NON-HODGKIN^S LYMPHOMA
     Route: 040
     Dates: start: 20131028, end: 20140218
  5. METHOTREXATE [Suspect]
     Indication: NON-HODGKIN^S LYMPHOMA
     Route: 041
     Dates: start: 20131028, end: 20140214

REACTIONS (2)
  - Mucosal inflammation [Not Recovered/Not Resolved]
  - Neutropenia [Not Recovered/Not Resolved]
